FAERS Safety Report 7030168-2 (Version None)
Quarter: 2010Q4

REPORT INFORMATION
  Report Type: 
  Country: None (occurrence: None)
  Receive Date: 20101006
  Receipt Date: 20100929
  Transmission Date: 20110411
  Serious: Yes (Other)
  Sender: FDA-Public Use
  Company Number: JP-BRISTOL-MYERS SQUIBB COMPANY-15269087

PATIENT
  Age: 30 Year
  Sex: Female

DRUGS (6)
  1. ABILIFY [Suspect]
     Indication: SCHIZOPHRENIA
     Dosage: 18MG FROM JUN10-25AUG10, REDUCED TO 3MG FROM 25AUG10-ONG
     Route: 048
     Dates: start: 20100601
  2. SERENACE [Concomitant]
     Dates: end: 20100825
  3. PHENOBARBITAL TAB [Concomitant]
     Dates: end: 20100825
  4. PHENYTOIN SODIUM [Concomitant]
     Dates: end: 20100825
  5. ROHYPNOL [Concomitant]
     Dates: end: 20100825
  6. BIPERIDEN HYDROCHLORIDE TAB [Concomitant]
     Dates: end: 20100825

REACTIONS (2)
  - ABORTION INDUCED [None]
  - PREGNANCY [None]
